FAERS Safety Report 10462275 (Version 1)
Quarter: 2014Q3

REPORT INFORMATION
  Report Type: Spontaneous
  Country: GB (occurrence: GB)
  Receive Date: 20140918
  Receipt Date: 20140918
  Transmission Date: 20150326
  Serious: Yes (Disabling, Other)
  Sender: FDA-Public Use
  Company Number: GB-WATSON-2014-19992

PATIENT
  Age: 26 Year
  Sex: Male

DRUGS (2)
  1. METRONIDAZOLE (UNKNOWN) [Suspect]
     Active Substance: BISMUTH SUBSALICYLATE\METRONIDAZOLE\TETRACYCLINE HYDROCHLORIDE
     Indication: TOOTH INFECTION
     Dosage: 200 MG, TID
     Route: 048
     Dates: start: 20140815, end: 20140821
  2. BECLOMETASONE DIPROPIONATE [Concomitant]
     Active Substance: BECLOMETHASONE DIPROPIONATE
     Indication: PRODUCT USED FOR UNKNOWN INDICATION
     Dosage: UNK
     Route: 065

REACTIONS (2)
  - Alcohol interaction [Unknown]
  - Vomiting [Recovered/Resolved]

NARRATIVE: CASE EVENT DATE: 20140824
